FAERS Safety Report 9686699 (Version 1)
Quarter: 2013Q4

REPORT INFORMATION
  Report Type: Spontaneous
  Country: US (occurrence: US)
  Receive Date: 20131113
  Receipt Date: 20131113
  Transmission Date: 20140711
  Serious: No
  Sender: FDA-Public Use
  Company Number: US-CUBIST PHARMACEUTICAL, INC.-2013CBST000177

PATIENT
  Age: 86 Year
  Sex: Male

DRUGS (2)
  1. CUBICIN [Suspect]
     Indication: INFECTION
     Dosage: 6 MG/KG, QD
     Dates: start: 201301
  2. LEVAQUIN [Suspect]
     Indication: INFECTION
     Dosage: UNK UNK, QD
     Dates: start: 201301, end: 201302

REACTIONS (1)
  - Infection [Not Recovered/Not Resolved]
